FAERS Safety Report 4348907-8 (Version None)
Quarter: 2004Q2

REPORT INFORMATION
  Report Type: 
  Country: None (occurrence: None)
  Receive Date: 20040421
  Receipt Date: 20031230
  Transmission Date: 20050107
  Serious: No
  Sender: FDA-Public Use
  Company Number: 30017678-C591826-1

PATIENT
  Age: 38 Year
  Sex: Female

DRUGS (3)
  1. EXTRANEAL [Suspect]
     Indication: PERITONEAL DIALYSIS
     Dosage: 7.5%ICODEXTRIN 2.5L QD IP
     Route: 033
     Dates: start: 20031027, end: 20031229
  2. DIANEAL LO/CAL [Concomitant]
  3. PREDNISONE [Concomitant]

REACTIONS (3)
  - DERMATITIS EXFOLIATIVE [None]
  - PRURITUS [None]
  - RASH ERYTHEMATOUS [None]
